FAERS Safety Report 18469588 (Version 1)
Quarter: 2020Q4

REPORT INFORMATION
  Report Type: Spontaneous
  Country: US (occurrence: US)
  Receive Date: 20201105
  Receipt Date: 20201105
  Transmission Date: 20210114
  Serious: Yes (Other)
  Sender: FDA-Public Use
  Company Number: US-BAUSCH-BL-2020-031499

PATIENT
  Sex: Male

DRUGS (3)
  1. ISTALOL [Suspect]
     Active Substance: TIMOLOL MALEATE
     Indication: GLAUCOMA
     Dosage: ONE DROP IN RIGHT EYE IN THE MORNING, 2.5 ML BOTTLE
     Route: 047
     Dates: start: 2013
  2. TRAVATAN [Suspect]
     Active Substance: TRAVOPROST
     Indication: GLAUCOMA
     Dosage: ONE DROP IN RIGHT EYE IN THE EVENING
     Route: 047
     Dates: start: 2013
  3. ROCKLATAN [Suspect]
     Active Substance: LATANOPROST\NETARSUDIL MESYLATE
     Indication: GLAUCOMA
     Route: 065
     Dates: start: 202004

REACTIONS (7)
  - Intraocular pressure decreased [Not Recovered/Not Resolved]
  - Headache [Unknown]
  - Insurance issue [Unknown]
  - Eye pain [Unknown]
  - Product packaging quantity issue [Unknown]
  - Vision blurred [Not Recovered/Not Resolved]
  - Retinal injury [Not Recovered/Not Resolved]

NARRATIVE: CASE EVENT DATE: 2020
